FAERS Safety Report 7344522-2 (Version None)
Quarter: 2011Q1

REPORT INFORMATION
  Report Type: 
  Country: None (occurrence: None)
  Receive Date: 20110308
  Receipt Date: 20110308
  Transmission Date: 20110831
  Serious: Yes (Other)
  Sender: FDA-Public Use
  Company Number: None

PATIENT
  Age: 70 Year
  Sex: Female
  Weight: 81.6475 kg

DRUGS (1)
  1. DONEPEZIL [Suspect]
     Indication: DEMENTIA ALZHEIMER'S TYPE
     Dosage: 10MG 1 DAILY PO
     Route: 048
     Dates: start: 20110201, end: 20110304

REACTIONS (2)
  - COGNITIVE DISORDER [None]
  - HALLUCINATION [None]
